FAERS Safety Report 8556505-5 (Version None)
Quarter: 2012Q3

REPORT INFORMATION
  Report Type: 
  Country: None (occurrence: None)
  Receive Date: 20120801
  Receipt Date: 20120731
  Transmission Date: 20120928
  Serious: Yes (Hospitalization)
  Sender: FDA-Public Use
  Company Number: PHHY2012AT065753

PATIENT
  Age: 52 Year
  Sex: Female
  Weight: 92 kg

DRUGS (4)
  1. XELODA [Concomitant]
     Indication: BREAST CANCER METASTATIC
     Dosage: 500 MG, (5-0-5)
     Route: 048
     Dates: start: 20111012, end: 20111020
  2. ZOLEDRONIC ACID [Suspect]
     Indication: BREAST CANCER METASTATIC
     Dosage: 4 MG, UNK
     Route: 042
     Dates: start: 20111012
  3. AVASTIN [Concomitant]
     Indication: BREAST CANCER METASTATIC
     Dosage: 1380 MG, TID
     Route: 042
     Dates: start: 20111012
  4. AVASTIN [Concomitant]
     Dosage: 1380 MG, BID
     Route: 042
     Dates: start: 20111012

REACTIONS (1)
  - DEVICE RELATED INFECTION [None]
